FAERS Safety Report 4990051-0 (Version None)
Quarter: 2006Q2

REPORT INFORMATION
  Report Type: 
  Country: None (occurrence: None)
  Receive Date: 20060427
  Receipt Date: 20060421
  Transmission Date: 20061013
  Serious: Yes (Hospitalization)
  Sender: FDA-Public Use
  Company Number: A044-002-006052

PATIENT
  Sex: Female

DRUGS (3)
  1. ARICEPT [Suspect]
     Indication: AGITATION
     Dosage: 10 MG, 1 IN 1 D, ORAL
     Route: 048
     Dates: start: 20060228, end: 20060328
  2. ARICEPT [Suspect]
     Indication: COGNITIVE DISORDER
     Dosage: 10 MG, 1 IN 1 D, ORAL
     Route: 048
     Dates: start: 20060228, end: 20060328
  3. LORAZEPAM [Concomitant]

REACTIONS (2)
  - EUPHORIC MOOD [None]
  - PSYCHOMOTOR HYPERACTIVITY [None]
